FAERS Safety Report 5341757-5 (Version None)
Quarter: 2007Q2

REPORT INFORMATION
  Report Type: 
  Country: None (occurrence: None)
  Receive Date: 20070530
  Receipt Date: 20070518
  Transmission Date: 20071010
  Serious: Yes (Hospitalization)
  Sender: FDA-Public Use
  Company Number: 2007AL002042

PATIENT
  Age: 26 Year
  Sex: Male

DRUGS (1)
  1. CHLORPROMAZINE HYDROCHLORIDE [Suspect]
     Indication: PSYCHOTIC DISORDER
     Dosage: 200 MG; QD
     Dates: start: 20050401

REACTIONS (1)
  - PRIAPISM [None]
